FAERS Safety Report 12465127 (Version 1)
Quarter: 2016Q2

REPORT INFORMATION
  Report Type: Spontaneous
  Country: FI (occurrence: FI)
  Receive Date: 20160614
  Receipt Date: 20160614
  Transmission Date: 20160815
  Serious: Yes (Other)
  Sender: FDA-Public Use
  Company Number: PHHY2016FI066961

PATIENT
  Age: 53 Year
  Sex: Male

DRUGS (1)
  1. COSENTYX [Suspect]
     Active Substance: SECUKINUMAB
     Indication: PSORIASIS
     Route: 065

REACTIONS (6)
  - Furuncle [Unknown]
  - Stomatitis [Unknown]
  - Genital discomfort [Unknown]
  - Purulent discharge [Unknown]
  - Staphylococcal infection [Unknown]
  - Palatal disorder [Unknown]
